FAERS Safety Report 6734016-7 (Version None)
Quarter: 2010Q2

REPORT INFORMATION
  Report Type: 
  Country: None (occurrence: None)
  Receive Date: 20100520
  Receipt Date: 20100514
  Transmission Date: 20101027
  Serious: Yes (Other)
  Sender: FDA-Public Use
  Company Number: US-WYE-H15176710

PATIENT
  Age: 89 Year
  Sex: Male

DRUGS (7)
  1. CORDARONE [Suspect]
     Indication: ATRIAL FIBRILLATION
     Dates: start: 20090101
  2. CORDARONE [Suspect]
  3. CORDARONE [Suspect]
  4. METFORMIN HYDROCHLORIDE [Concomitant]
  5. MEGACE [Suspect]
     Indication: WEIGHT INCREASED
  6. LASIX [Concomitant]
  7. LOPRESSOR [Concomitant]

REACTIONS (5)
  - DECREASED APPETITE [None]
  - FATIGUE [None]
  - MALAISE [None]
  - SOMNOLENCE [None]
  - WEIGHT DECREASED [None]
